FAERS Safety Report 17054800 (Version 2)
Quarter: 2020Q1

REPORT INFORMATION
  Report Type: Spontaneous
  Country: US (occurrence: US)
  Receive Date: 20191120
  Receipt Date: 20200114
  Transmission Date: 20200409
  Serious: Yes (Hospitalization)
  Sender: FDA-Public Use
  Company Number: US-LANNETT COMPANY, INC.-US-2019LAN001146

PATIENT
  Age: 0 Year
  Sex: Female

DRUGS (1)
  1. RANITIDINE HYDROCHLORIDE. [Suspect]
     Active Substance: RANITIDINE HYDROCHLORIDE
     Indication: GASTROOESOPHAGEAL REFLUX DISEASE
     Dosage: 0.5 ML, BID
     Route: 048
     Dates: start: 20181105

REACTIONS (5)
  - Blood glucose decreased [Recovered/Resolved]
  - Metabolic function test abnormal [Recovered/Resolved]
  - Weight decreased [Recovered/Resolved]
  - Heart disease congenital [Recovering/Resolving]
  - Vomiting [Recovered/Resolved]

NARRATIVE: CASE EVENT DATE: 2018
